FAERS Safety Report 14337592 (Version 1)
Quarter: 2017Q4

REPORT INFORMATION
  Report Type: Spontaneous
  Country: US (occurrence: US)
  Receive Date: 20171228
  Receipt Date: 20171228
  Transmission Date: 20180321
  Serious: Yes (Other)
  Sender: FDA-Public Use
  Company Number: None

PATIENT
  Age: 62 Year
  Sex: Female
  Weight: 49.9 kg

DRUGS (4)
  1. COMBIGEN [Concomitant]
  2. REFRESH [Concomitant]
     Active Substance: UNSPECIFIED INGREDIENT
  3. CIPROFLOXACIN HYDROCHLORIDE OPHTHALMIC SOLUTION 0.3% AS BASE [Suspect]
     Active Substance: CIPROFLOXACIN HYDROCHLORIDE
     Indication: SURGERY
     Dosage: 5ML TWICE A DAY INSTILL I DROP 4 TIMES A DAY FOR 3 DAYS THEN TWICE A DAY.
     Dates: start: 20171220, end: 20171228
  4. MULTIPLE VITAMIN [Concomitant]
     Active Substance: VITAMINS

REACTIONS (1)
  - Eye irritation [None]

NARRATIVE: CASE EVENT DATE: 20171220
